FAERS Safety Report 9671749 (Version 1)
Quarter: 2013Q4

REPORT INFORMATION
  Report Type: Spontaneous
  Country: US (occurrence: None)
  Receive Date: 20131105
  Receipt Date: 20131105
  Transmission Date: 20140711
  Serious: No
  Sender: FDA-Public Use
  Company Number: None

PATIENT
  Age: 61 Year
  Sex: Male

DRUGS (1)
  1. STIVARGA 40MG BAYER [Suspect]
     Indication: COLON CANCER
     Dosage: 160MG DAILY FOR 21 DAYS, OFF 7 DAYS PO
     Route: 048
     Dates: start: 20131016

REACTIONS (4)
  - Feeling cold [None]
  - Tremor [None]
  - Fatigue [None]
  - Vomiting [None]
